FAERS Safety Report 11145803 (Version 2)
Quarter: 2015Q2

REPORT INFORMATION
  Report Type: Spontaneous
  Country: IT (occurrence: None)
  Receive Date: 20150526
  Receipt Date: 20150615
  Transmission Date: 20150821
  Serious: Yes (Hospitalization)
  Sender: FDA-Public Use
  Company Number: FK201501394

PATIENT
  Age: 63 Year
  Sex: Male
  Weight: 67 kg

DRUGS (9)
  1. FLUOROURACILE [Suspect]
     Active Substance: FLUOROURACIL
     Indication: ADENOCARCINOMA OF COLON
     Dosage: 2800 MG/M2, CYCLICAL, INTRAVENOUS (NOT OTHERWISE SPECIFIED)?
     Route: 042
     Dates: start: 20150105, end: 20150119
  2. PARACETAMOL (PARACETAMOL) [Concomitant]
     Active Substance: ACETAMINOPHEN
  3. TARGIN (TARGIN) [Concomitant]
     Active Substance: NALOXONE HYDROCHLORIDE\OXYCODONE HYDROCHLORIDE
  4. CALCIO LEVOFOLINATO [Suspect]
     Active Substance: LEVOLEUCOVORIN CALCIUM
     Indication: ADENOCARCINOMA OF COLON
     Dosage: 400 MG/M2, CYCLICAL, INTRAVENOUS ?
     Route: 042
     Dates: start: 20150105, end: 20150119
  5. INDOMETHACIN (INDOMETACIN) [Concomitant]
     Active Substance: INDOMETHACIN
  6. ZALTRAP (ZIV-AFLIBERCEPT) [Concomitant]
  7. FENTANYL (FENTANYL) [Concomitant]
     Active Substance: FENTANYL
  8. IRINOTECAN [Suspect]
     Active Substance: IRINOTECAN
     Indication: ADENOCARCINOMA OF COLON
     Dosage: 180 MG/M2, CYCLICAL, INTRAVENOUS (NOT OTHERWISE SPECIFIED)?
     Route: 042
     Dates: start: 20150105, end: 20150119
  9. PREGABALIN (PREGABALIN) [Concomitant]
     Active Substance: PREGABALIN

REACTIONS (5)
  - Nausea [None]
  - Vomiting [None]
  - Epididymitis [None]
  - Diarrhoea [None]
  - Asthenia [None]

NARRATIVE: CASE EVENT DATE: 20150202
